FAERS Safety Report 4705339-8 (Version None)
Quarter: 2005Q2

REPORT INFORMATION
  Report Type: 
  Country: None (occurrence: None)
  Receive Date: 20050630
  Receipt Date: 20050630
  Transmission Date: 20051028
  Serious: Yes (Other)
  Sender: FDA-Public Use
  Company Number: None

PATIENT
  Age: 17 Year
  Sex: Male
  Weight: 77.1115 kg

DRUGS (3)
  1. LEXAPRO [Suspect]
     Dates: start: 20041229, end: 20050111
  2. ABILIFY [Concomitant]
  3. DEPAKOTE [Concomitant]

REACTIONS (1)
  - AGGRESSION [None]
